FAERS Safety Report 6643680-2 (Version None)
Quarter: 2010Q1

REPORT INFORMATION
  Report Type: 
  Country: None (occurrence: None)
  Receive Date: 20100321
  Receipt Date: 20100308
  Transmission Date: 20100710
  Serious: Yes (Death, Other)
  Sender: FDA-Public Use
  Company Number: DE-BRISTOL-MYERS SQUIBB COMPANY-15023088

PATIENT
  Age: 58 Year
  Sex: Male

DRUGS (3)
  1. CISPLATIN [Suspect]
     Indication: CHORIOCARCINOMA
  2. BLEOMYCIN SULFATE [Suspect]
     Indication: CHORIOCARCINOMA
     Dosage: ON DAYS 1, 8 AND 15.
  3. VINBLASTINE SULFATE [Suspect]
     Indication: CHORIOCARCINOMA

REACTIONS (2)
  - ARTERITIS [None]
  - CEREBROVASCULAR ACCIDENT [None]
